FAERS Safety Report 19098469 (Version 1)
Quarter: 2021Q2

REPORT INFORMATION
  Report Type: Report from Study
  Country: US (occurrence: US)
  Receive Date: 20210406
  Receipt Date: 20210406
  Transmission Date: 20210717
  Serious: Yes (Other)
  Sender: FDA-Public Use
  Company Number: US-AMGEN-USA-20200309595

PATIENT
  Age: 59 Year
  Sex: Female

DRUGS (3)
  1. OTEZLA [Suspect]
     Active Substance: APREMILAST
     Indication: PSORIATIC ARTHROPATHY
  2. METHOTREXATE. [Concomitant]
     Active Substance: METHOTREXATE
     Indication: PRODUCT USED FOR UNKNOWN INDICATION
     Dosage: UNK
     Route: 065
  3. OTEZLA [Suspect]
     Active Substance: APREMILAST
     Indication: PSORIASIS
     Dosage: 60 MILLIGRAM, BID
     Route: 048
     Dates: start: 201811

REACTIONS (8)
  - Eye disorder [Unknown]
  - Stress [Unknown]
  - Weight decreased [Unknown]
  - Psoriatic arthropathy [Not Recovered/Not Resolved]
  - Blindness [Not Recovered/Not Resolved]
  - Psoriasis [Unknown]
  - Gastric disorder [Unknown]
  - Drug ineffective [Unknown]

NARRATIVE: CASE EVENT DATE: 20191227
